FAERS Safety Report 18647285 (Version 7)
Quarter: 2022Q3

REPORT INFORMATION
  Report Type: Report from Study
  Country: US (occurrence: US)
  Receive Date: 20201222
  Receipt Date: 20220705
  Transmission Date: 20221027
  Serious: Yes (Hospitalization, Other)
  Sender: FDA-Public Use
  Company Number: US-SUN PHARMACEUTICAL INDUSTRIES LTD-2020R1-250497

PATIENT
  Sex: Female

DRUGS (3)
  1. BOSENTAN [Suspect]
     Active Substance: BOSENTAN
     Indication: Pulmonary arterial hypertension
     Dosage: 125 MILLIGRAM, BID
     Route: 048
     Dates: start: 20181206
  2. BOSENTAN [Suspect]
     Active Substance: BOSENTAN
     Dosage: 125 MILLIGRAM, BID
     Route: 048
     Dates: start: 20181206
  3. UPTRAVI [Concomitant]
     Active Substance: SELEXIPAG
     Indication: Product used for unknown indication
     Dosage: UNK
     Route: 065

REACTIONS (5)
  - Coronavirus infection [Unknown]
  - Fluid retention [Unknown]
  - Product dose omission issue [Unknown]
  - Diarrhoea [Not Recovered/Not Resolved]
  - Product quality issue [Unknown]

NARRATIVE: CASE EVENT DATE: 20200101
